FAERS Safety Report 16827376 (Version 1)
Quarter: 2019Q4

REPORT INFORMATION
  Report Type: Spontaneous
  Country: US (occurrence: US)
  Receive Date: 20190919
  Receipt Date: 20190919
  Transmission Date: 20200122
  Serious: Yes (Other)
  Sender: FDA-Public Use
  Company Number: None

PATIENT
  Age: 36 Year
  Sex: Female
  Weight: 67.5 kg

DRUGS (2)
  1. BELBUCA [Suspect]
     Active Substance: BUPRENORPHINE HYDROCHLORIDE
     Indication: SYSTEMIC LUPUS ERYTHEMATOSUS
     Route: 002
     Dates: start: 20190502, end: 20190912
  2. BELBUCA [Suspect]
     Active Substance: BUPRENORPHINE HYDROCHLORIDE
     Indication: RHEUMATOID ARTHRITIS
     Route: 002
     Dates: start: 20190502, end: 20190912

REACTIONS (3)
  - Fatigue [None]
  - Adrenal disorder [None]
  - Alopecia [None]

NARRATIVE: CASE EVENT DATE: 20190601
